FAERS Safety Report 23285510 (Version 2)
Quarter: 2024Q1

REPORT INFORMATION
  Report Type: Spontaneous
  Country: US (occurrence: US)
  Receive Date: 20231211
  Receipt Date: 20240110
  Transmission Date: 20240410
  Serious: No
  Sender: FDA-Public Use
  Company Number: US-SA-SAC20231206000658

PATIENT
  Sex: Female
  Weight: 52.16 kg

DRUGS (1)
  1. DUPIXENT [Suspect]
     Active Substance: DUPILUMAB
     Indication: Dermatitis atopic
     Dosage: 300 MG UNDER THE SKIN FREQUENCY- EVERY 15 DAYS
     Route: 058

REACTIONS (2)
  - Rebound atopic dermatitis [Recovered/Resolved]
  - Product dose omission issue [Unknown]
